FAERS Safety Report 9501808 (Version 2)
Quarter: 2014Q1

REPORT INFORMATION
  Report Type: Spontaneous
  Country: US (occurrence: US)
  Receive Date: 20130905
  Receipt Date: 20140203
  Transmission Date: 20141002
  Serious: Yes (Other)
  Sender: FDA-Public Use
  Company Number: US-INCYTE CORPORATION-2013IN001986

PATIENT
  Age: 71 Year
  Sex: Female
  Weight: 92.06 kg

DRUGS (2)
  1. JAKAFI [Suspect]
     Indication: MYELOPROLIFERATIVE DISORDER
     Dosage: 20 MG, QD
     Route: 048
     Dates: start: 20120222
  2. JAKAFI [Suspect]
     Dosage: 20 MG, QD
     Route: 048
     Dates: start: 20121203, end: 20130424

REACTIONS (3)
  - Hip surgery [Unknown]
  - Neuropathy peripheral [Recovering/Resolving]
  - Platelet count decreased [Unknown]
